FAERS Safety Report 9485619 (Version 2)
Quarter: 2013Q3

REPORT INFORMATION
  Report Type: Report from Study
  Country: UG (occurrence: UG)
  Receive Date: 20130829
  Receipt Date: 20130829
  Transmission Date: 20140515
  Serious: Yes (Death, Hospitalization)
  Sender: FDA-Public Use
  Company Number: UG-009507513-1106USA02368

PATIENT
  Age: 36 Year
  Sex: Female

DRUGS (3)
  1. RALTEGRAVIR POTASSIUM [Suspect]
     Indication: HIV INFECTION
     Route: 048
     Dates: start: 20110317, end: 20110602
  2. LOPINAVIR (+) RITONAVIR [Suspect]
     Indication: HIV INFECTION
     Route: 048
     Dates: start: 20110317
  3. SEPTRIN [Concomitant]
     Indication: HIV INFECTION
     Dates: start: 20070914

REACTIONS (2)
  - Pulmonary tuberculosis [Fatal]
  - Pneumonia klebsiella [Fatal]
